FAERS Safety Report 9076823 (Version 1)
Quarter: 2013Q1

REPORT INFORMATION
  Report Type: Report from Study
  Country: US (occurrence: US)
  Receive Date: 20130129
  Receipt Date: 20130129
  Transmission Date: 20140127
  Serious: No
  Sender: FDA-Public Use
  Company Number: US-ABBOTT-12P-163-0938140-00

PATIENT
  Age: 33 Year
  Sex: Female

DRUGS (4)
  1. HUMIRA 40 MG/0.8 ML PEN [Suspect]
     Indication: PSORIASIS
     Dosage: LOADING DOSE
     Route: 058
     Dates: start: 20120511, end: 20120511
  2. HUMIRA 40 MG/0.8 ML PEN [Suspect]
     Route: 058
     Dates: start: 20120518, end: 20120615
  3. PROZAC [Concomitant]
     Indication: DEPRESSION
     Dosage: 20MG DAILY
  4. MULTIVITAMIN [Concomitant]
     Indication: PRODUCT USED FOR UNKNOWN INDICATION
     Dosage: DAILY

REACTIONS (8)
  - Menstrual disorder [Recovering/Resolving]
  - Acne [Recovering/Resolving]
  - Injection site erythema [Recovering/Resolving]
  - Menorrhagia [Recovering/Resolving]
  - Dysmenorrhoea [Recovering/Resolving]
  - Fungal infection [Recovering/Resolving]
  - Laceration [Unknown]
  - Impaired healing [Unknown]
